FAERS Safety Report 4677134-X (Version None)
Quarter: 2005Q2

REPORT INFORMATION
  Report Type: 
  Country: None (occurrence: None)
  Receive Date: 20050526
  Receipt Date: 20050526
  Transmission Date: 20051028
  Serious: Yes (Hospitalization)
  Sender: FDA-Public Use
  Company Number: None

PATIENT
  Age: 18 Year
  Sex: Male
  Weight: 139.6 kg

DRUGS (5)
  1. TEMODAR [Suspect]
     Indication: AUTISM
     Dosage: 200MG  PO QD  X 42DAYS  (6 WEEKS THEN 2 WEEKS OFF STARTED FALL 2004)
     Route: 048
  2. TEMODAR [Suspect]
     Indication: GLIOMA
     Dosage: 200MG  PO QD  X 42DAYS  (6 WEEKS THEN 2 WEEKS OFF STARTED FALL 2004)
     Route: 048
  3. THALIDOMIDE [Concomitant]
  4. RISPERDAL [Concomitant]
  5. KEPPRA [Concomitant]

REACTIONS (4)
  - ANAEMIA [None]
  - BACK PAIN [None]
  - HYPERTENSION [None]
  - RENAL FAILURE ACUTE [None]
